FAERS Safety Report 7928390-3 (Version None)
Quarter: 2011Q4

REPORT INFORMATION
  Report Type: 
  Country: None (occurrence: None)
  Receive Date: 20111118
  Receipt Date: 20111110
  Transmission Date: 20120403
  Serious: Yes (Disabling)
  Sender: FDA-Public Use
  Company Number: US-US-EMD SERONO, INC.-7083012

PATIENT
  Sex: Female

DRUGS (1)
  1. REBIF [Suspect]
     Indication: MULTIPLE SCLEROSIS
     Route: 058
     Dates: start: 20101109

REACTIONS (12)
  - SCOTOMA [None]
  - VERTIGO [None]
  - CENTRAL NERVOUS SYSTEM LESION [None]
  - PAIN IN EXTREMITY [None]
  - HYPOAESTHESIA [None]
  - PYREXIA [None]
  - INJECTION SITE REACTION [None]
  - LIMB DISCOMFORT [None]
  - CHILLS [None]
  - DIZZINESS [None]
  - PARAESTHESIA [None]
  - MYALGIA [None]
